FAERS Safety Report 6917275-7 (Version None)
Quarter: 2010Q3

REPORT INFORMATION
  Report Type: 
  Country: None (occurrence: None)
  Receive Date: 20100810
  Receipt Date: 20100803
  Transmission Date: 20110219
  Serious: Yes (Hospitalization, Other)
  Sender: FDA-Public Use
  Company Number: JP-MERCK-1007USA01479

PATIENT
  Age: 45 Year
  Sex: Male
  Weight: 56 kg

DRUGS (4)
  1. PEPCID RPD [Suspect]
     Indication: ABDOMINAL PAIN UPPER
     Route: 048
     Dates: start: 20100527, end: 20100530
  2. MEIACT [Suspect]
     Indication: NASOPHARYNGITIS
     Route: 048
     Dates: start: 20100507, end: 20100510
  3. TIAPROFENIC ACID [Concomitant]
     Indication: NASOPHARYNGITIS
     Route: 048
     Dates: start: 20100507, end: 20100510
  4. ZYRTEC [Suspect]
     Indication: PRURITUS
     Route: 048
     Dates: start: 20100529, end: 20100602

REACTIONS (2)
  - LIVER DISORDER [None]
  - RASH [None]
